FAERS Safety Report 6823292-8 (Version None)
Quarter: 2010Q3

REPORT INFORMATION
  Report Type: 
  Country: None (occurrence: None)
  Receive Date: 20100708
  Receipt Date: 20100628
  Transmission Date: 20110219
  Serious: Yes (Hospitalization)
  Sender: FDA-Public Use
  Company Number: FR-BAXTER-2010BH017129

PATIENT
  Age: 56 Year
  Sex: Female

DRUGS (7)
  1. HOLOXAN BAXTER [Suspect]
     Indication: NON-HODGKIN'S LYMPHOMA RECURRENT
     Route: 042
     Dates: start: 20100510, end: 20100512
  2. CYTARABINE [Suspect]
     Indication: NON-HODGKIN'S LYMPHOMA RECURRENT
     Route: 037
     Dates: start: 20100511, end: 20100511
  3. METHOTREXATE [Suspect]
     Indication: NON-HODGKIN'S LYMPHOMA RECURRENT
     Route: 042
     Dates: start: 20100511, end: 20100511
  4. METHOTREXATE [Suspect]
     Route: 037
     Dates: start: 20100510, end: 20100510
  5. MITOXANTRONE GENERIC [Suspect]
     Indication: NON-HODGKIN'S LYMPHOMA RECURRENT
     Route: 042
     Dates: start: 20100510, end: 20100511
  6. ETOPOSIDE GENERIC [Suspect]
     Indication: NON-HODGKIN'S LYMPHOMA RECURRENT
     Route: 042
     Dates: start: 20100510, end: 20100511
  7. MABTHERA [Suspect]
     Indication: NON-HODGKIN'S LYMPHOMA RECURRENT
     Route: 042
     Dates: start: 20100510, end: 20100510

REACTIONS (5)
  - CONFUSIONAL STATE [None]
  - DYSSTASIA [None]
  - ENCEPHALOPATHY [None]
  - MENTAL IMPAIRMENT [None]
  - URINARY INCONTINENCE [None]
